FAERS Safety Report 10538786 (Version 2)
Quarter: 2014Q4

REPORT INFORMATION
  Report Type: Spontaneous
  Country: JP (occurrence: JP)
  Receive Date: 20141023
  Receipt Date: 20141103
  Transmission Date: 20150529
  Serious: Yes (Life-Threatening, Hospitalization)
  Sender: FDA-Public Use
  Company Number: JP-BAYER-2014-150231

PATIENT
  Age: 78 Year
  Sex: Female
  Weight: 54 kg

DRUGS (9)
  1. ROCALTROL [Concomitant]
     Active Substance: CALCITRIOL
     Dosage: UNK
  2. SUNRYTHM [Concomitant]
     Active Substance: PILSICAINIDE HYDROCHLORIDE
     Dosage: UNK
  3. MYONAL [Concomitant]
     Active Substance: EPERISONE HYDROCHLORIDE
     Dosage: UNK
     Route: 048
  4. PRIMOVIST [Suspect]
     Active Substance: GADOXETATE DISODIUM
     Indication: NUCLEAR MAGNETIC RESONANCE IMAGING
     Dosage: 5 ML, ONCE
     Route: 042
     Dates: start: 20141008, end: 20141008
  5. MYSLEE [Concomitant]
     Active Substance: ZOLPIDEM TARTRATE
     Dosage: UNK
     Route: 048
  6. SELBEX [Concomitant]
     Active Substance: TEPRENONE
     Dosage: UNK
     Route: 048
  7. PRIMOVIST [Suspect]
     Active Substance: GADOXETATE DISODIUM
     Indication: PANCREATIC CARCINOMA
  8. LOXOPROFEN [Concomitant]
     Active Substance: LOXOPROFEN
     Dosage: UNK
     Route: 048
  9. FLUITRAN [Concomitant]
     Active Substance: TRICHLORMETHIAZIDE
     Dosage: UNK
     Route: 048

REACTIONS (7)
  - Electrocardiogram ST segment elevation [None]
  - Pulse absent [Recovered/Resolved]
  - Unresponsive to stimuli [Recovered/Resolved]
  - Cardiac arrest [Recovered/Resolved]
  - Atrioventricular block complete [None]
  - Respiration abnormal [Recovered/Resolved]
  - Stress cardiomyopathy [None]

NARRATIVE: CASE EVENT DATE: 20141008
